FAERS Safety Report 8224952-7 (Version None)
Quarter: 2012Q1

REPORT INFORMATION
  Report Type: 
  Country: None (occurrence: None)
  Receive Date: 20120321
  Receipt Date: 20120312
  Transmission Date: 20120608
  Serious: No
  Sender: FDA-Public Use
  Company Number: US-B.I. PHARMACEUTICALS,INC./RIDGEFIELD-2012-BP-04797BP

PATIENT
  Sex: Male

DRUGS (8)
  1. ZANTAC 150 [Suspect]
     Indication: DYSPEPSIA
     Dosage: 300 MG
     Route: 048
     Dates: start: 20120301, end: 20120306
  2. IBUPROFEN [Concomitant]
     Indication: INTERVERTEBRAL DISC PROTRUSION
  3. VICODIN [Concomitant]
     Indication: BACK PAIN
     Route: 048
     Dates: start: 20120301, end: 20120302
  4. VICODIN [Concomitant]
     Indication: INTERVERTEBRAL DISC PROTRUSION
  5. IBUPROFEN [Concomitant]
     Indication: BACK PAIN
     Route: 048
     Dates: start: 20120301
  6. UNSPECIFIED STEROID [Concomitant]
     Indication: BACK PAIN
     Route: 048
     Dates: start: 20120301, end: 20120307
  7. UNSPECIFIED STEROID [Concomitant]
     Indication: INTERVERTEBRAL DISC PROTRUSION
  8. UNSPECIFIED ANTIHYPERTENSIVE MEDICATION [Concomitant]
     Indication: HYPERTENSION
     Dates: start: 20110101

REACTIONS (1)
  - DRUG SCREEN FALSE POSITIVE [None]
